FAERS Safety Report 9442001 (Version 1)
Quarter: 2013Q3

REPORT INFORMATION
  Report Type: Spontaneous
  Country: BR (occurrence: BR)
  Receive Date: 20130806
  Receipt Date: 20130806
  Transmission Date: 20140515
  Serious: Yes (Other)
  Sender: FDA-Public Use
  Company Number: BR-AMGEN-BRASP2013034994

PATIENT
  Age: 56 Year
  Sex: Female
  Weight: 77 kg

DRUGS (8)
  1. ENBREL [Suspect]
     Indication: RHEUMATOID ARTHRITIS
     Dosage: 50 MG, WEEKLY
     Route: 065
     Dates: start: 201304, end: 201305
  2. ENBREL [Suspect]
     Dosage: 50 MG, WEEKLY
     Route: 065
     Dates: start: 201306
  3. PURAN T4 [Concomitant]
     Indication: HYPOTHYROIDISM
     Dosage: 50 MG, 1X/DAY
     Dates: start: 1990
  4. PURAN T4 [Concomitant]
     Indication: THYROID DISORDER
     Dosage: UNK
  5. DEFLAZACORT [Concomitant]
     Indication: OSTEOARTHRITIS
     Dosage: 6 MG, UNK
     Dates: start: 2012
  6. CYMBALTA [Concomitant]
     Dosage: UNK
  7. ARAVA [Concomitant]
     Dosage: UNK
  8. HYDROCHLOROTHIAZIDE [Concomitant]
     Indication: BLOOD PRESSURE ABNORMAL
     Dosage: 50 MG, UNK

REACTIONS (13)
  - Erythema [Unknown]
  - Diabetes mellitus [Unknown]
  - Drug ineffective [Unknown]
  - Pyrexia [Unknown]
  - Pain [Unknown]
  - Headache [Unknown]
  - Dizziness [Unknown]
  - Diarrhoea [Unknown]
  - Vomiting [Unknown]
  - Weight decreased [Unknown]
  - Influenza [Not Recovered/Not Resolved]
  - Injection site erythema [Unknown]
  - Paraesthesia [Unknown]
